FAERS Safety Report 6619447-8 (Version None)
Quarter: 2010Q1

REPORT INFORMATION
  Report Type: 
  Country: None (occurrence: None)
  Receive Date: 20100304
  Receipt Date: 20100225
  Transmission Date: 20100710
  Serious: Yes (Death)
  Sender: FDA-Public Use
  Company Number: WAES 1001USA00588

PATIENT
  Age: 65 Year
  Sex: Male
  Weight: 85.2762 kg

DRUGS (3)
  1. CAP VORINOSTAT [Suspect]
     Indication: LUNG CANCER METASTATIC
     Dosage: 400 MG/DAILY/PO
     Route: 048
     Dates: start: 20091228, end: 20100108
  2. THERAPEUTIC RADIOPHARMACEUTICAL (UNSPECIFIED) UNK [Suspect]
     Indication: LUNG CANCER METASTATIC
     Dosage: 300 ML
     Dates: start: 20091228, end: 20091230
  3. THERAPEUTIC RADIOPHARMACEUTICAL (UNSPECIFIED) UNK [Suspect]
     Indication: LUNG CANCER METASTATIC
     Dosage: 300 ML
     Dates: start: 20100102, end: 20100108

REACTIONS (7)
  - BLOOD CALCIUM INCREASED [None]
  - BLOOD GLUCOSE INCREASED [None]
  - BLOOD UREA INCREASED [None]
  - CARBON DIOXIDE DECREASED [None]
  - HAEMATOCRIT DECREASED [None]
  - HAEMOGLOBIN DECREASED [None]
  - MYOCARDIAL INFARCTION [None]
